FAERS Safety Report 10370797 (Version 1)
Quarter: 2014Q3

REPORT INFORMATION
  Report Type: Spontaneous
  Country: US (occurrence: None)
  Receive Date: 20140806
  Receipt Date: 20140806
  Transmission Date: 20150326
  Serious: Yes (Hospitalization, Other)
  Sender: FDA-Public Use
  Company Number: DAV-AE-MTX-14-36

PATIENT
  Age: 27 Year
  Sex: Female

DRUGS (5)
  1. CYCLOPHOSPHAMIDE. [Concomitant]
     Active Substance: CYCLOPHOSPHAMIDE
  2. VINCRISTINE [Concomitant]
     Active Substance: VINCRISTINE
  3. METHOTREXATE [Suspect]
     Active Substance: METHOTREXATE
     Indication: BENIGN HYDATIDIFORM MOLE
     Dosage: SINGLE CYCLE
  4. ETOPOSIDE. [Concomitant]
     Active Substance: ETOPOSIDE
  5. DACTINOMYCIN [Concomitant]
     Active Substance: DACTINOMYCIN

REACTIONS (1)
  - Acute myeloid leukaemia [None]
